FAERS Safety Report 10885717 (Version 1)
Quarter: 2015Q1

REPORT INFORMATION
  Report Type: Spontaneous
  Country: TR (occurrence: TR)
  Receive Date: 20150304
  Receipt Date: 20150304
  Transmission Date: 20150721
  Serious: Yes (Other)
  Sender: FDA-Public Use
  Company Number: TR-ACTAVIS-2015-04133

PATIENT
  Age: 67 Year
  Sex: Female

DRUGS (5)
  1. GABAPENTIN (UNKNOWN) [Suspect]
     Active Substance: GABAPENTIN
     Indication: TRIGEMINAL NEURALGIA
     Dosage: UNK
     Route: 048
  2. CARBAMAZEPINE (UNKNOWN) [Suspect]
     Active Substance: CARBAMAZEPINE
     Indication: TRIGEMINAL NEURALGIA
     Dosage: UNK
     Route: 048
  3. CARTEOLOL HYDROCHLORIDE. [Concomitant]
     Active Substance: CARTEOLOL HYDROCHLORIDE
     Indication: EXFOLIATION GLAUCOMA
     Dosage: UNK
     Route: 065
  4. TRAVOPROST [Concomitant]
     Active Substance: TRAVOPROST
     Indication: EXFOLIATION GLAUCOMA
     Dosage: UNK
     Route: 065
  5. BRIMONIDINE TARTRATE. [Concomitant]
     Active Substance: BRIMONIDINE TARTRATE
     Indication: EXFOLIATION GLAUCOMA
     Dosage: UNK
     Route: 065

REACTIONS (1)
  - Intraocular pressure increased [Unknown]
